FAERS Safety Report 13998955 (Version 1)
Quarter: 2017Q3

REPORT INFORMATION
  Report Type: Spontaneous
  Country: US (occurrence: US)
  Receive Date: 20170922
  Receipt Date: 20170922
  Transmission Date: 20171128
  Serious: Yes (Other)
  Sender: FDA-Public Use
  Company Number: None

PATIENT
  Age: 51 Year
  Sex: Female
  Weight: 57.15 kg

DRUGS (6)
  1. CALCIUM WITH VITAMIN D [Concomitant]
     Active Substance: CALCIUM\VITAMIN D
  2. OMEPRAZOLE. [Concomitant]
     Active Substance: OMEPRAZOLE
  3. PROLIA [Suspect]
     Active Substance: DENOSUMAB
     Indication: OSTEOPOROSIS
     Route: 058
     Dates: start: 20160711, end: 20170127
  4. RANITIDINE. [Concomitant]
     Active Substance: RANITIDINE
  5. THYROID DESICCATED [Concomitant]
  6. TUMS [Concomitant]
     Active Substance: CALCIUM CARBONATE

REACTIONS (6)
  - Tooth loss [None]
  - Food allergy [None]
  - Tendonitis [None]
  - Skin exfoliation [None]
  - Muscle spasms [None]
  - Dental caries [None]

NARRATIVE: CASE EVENT DATE: 20170725
